FAERS Safety Report 17111171 (Version 1)
Quarter: 2019Q4

REPORT INFORMATION
  Report Type: Spontaneous
  Country: US (occurrence: US)
  Receive Date: 20191203
  Receipt Date: 20191203
  Transmission Date: 20200122
  Serious: Yes (Hospitalization)
  Sender: FDA-Public Use
  Company Number: None

PATIENT
  Age: 72 Year
  Sex: Female
  Weight: 59.42 kg

DRUGS (10)
  1. TAB-A VITE [Concomitant]
  2. PROCHLORPERAZINE. [Concomitant]
     Active Substance: PROCHLORPERAZINE
  3. ONDANSETRON [Concomitant]
     Active Substance: ONDANSETRON
  4. PIQRAY [Suspect]
     Active Substance: ALPELISIB
     Indication: MALIGNANT NIPPLE NEOPLASM
     Route: 048
     Dates: start: 20190913, end: 20191120
  5. VITAMIN C [Concomitant]
     Active Substance: ASCORBIC ACID
  6. METOPROLOL. [Concomitant]
     Active Substance: METOPROLOL
  7. ELIQUIS [Concomitant]
     Active Substance: APIXABAN
  8. FULVESTRANT. [Concomitant]
     Active Substance: FULVESTRANT
  9. FLECAINIDE [Concomitant]
     Active Substance: FLECAINIDE
  10. ONE DAILY FOR WOMEN 50+ [Concomitant]

REACTIONS (2)
  - Blood glucose increased [None]
  - Ill-defined disorder [None]

NARRATIVE: CASE EVENT DATE: 20191120
